FAERS Safety Report 18997561 (Version 5)
Quarter: 2021Q4

REPORT INFORMATION
  Report Type: Spontaneous
  Country: US (occurrence: US)
  Receive Date: 20210311
  Receipt Date: 20211028
  Transmission Date: 20220303
  Serious: Yes (Other)
  Sender: FDA-Public Use
  Company Number: US-KARYOPHARM-2021KPT000290

PATIENT

DRUGS (1)
  1. XPOVIO [Suspect]
     Active Substance: SELINEXOR
     Indication: Plasma cell myeloma
     Dosage: 80 MG, WEEKLY
     Route: 048
     Dates: start: 20210212, end: 20210301

REACTIONS (8)
  - Spinal fracture [Not Recovered/Not Resolved]
  - Stupor [Unknown]
  - Lethargy [Unknown]
  - White blood cell count decreased [Unknown]
  - Feeling abnormal [Recovered/Resolved]
  - Weight decreased [Unknown]
  - Asthenia [Unknown]
  - Red blood cell count decreased [Unknown]

NARRATIVE: CASE EVENT DATE: 20210201
